FAERS Safety Report 14601059 (Version 2)
Quarter: 2018Q1

REPORT INFORMATION
  Report Type: Report from Study
  Country: US (occurrence: US)
  Receive Date: 20180305
  Receipt Date: 20180314
  Transmission Date: 20180509
  Serious: Yes (Other)
  Sender: FDA-Public Use
  Company Number: US-ACTELION-A-US2016-139612

PATIENT
  Age: 78 Year
  Sex: Female
  Weight: 77.98 kg

DRUGS (8)
  1. OPSUMIT [Suspect]
     Active Substance: MACITENTAN
     Indication: PULMONARY ARTERIAL HYPERTENSION
     Dosage: 10 MG, QD
     Route: 048
     Dates: start: 20160224
  2. UPTRAVI [Suspect]
     Active Substance: SELEXIPAG
     Indication: PULMONARY ARTERIAL HYPERTENSION
     Dosage: 400 MCG, BID
     Route: 048
     Dates: start: 20160505
  3. UPTRAVI [Suspect]
     Active Substance: SELEXIPAG
     Dosage: 800 MCG, BID
     Route: 048
  4. SILDENAFIL. [Concomitant]
     Active Substance: SILDENAFIL
  5. COUMADIN [Concomitant]
     Active Substance: WARFARIN SODIUM
  6. UPTRAVI [Suspect]
     Active Substance: SELEXIPAG
     Dosage: 1600 MCG, BID
     Route: 048
  7. GABAPENTIN. [Concomitant]
     Active Substance: GABAPENTIN
     Dosage: UNK
  8. ADEMPAS [Concomitant]
     Active Substance: RIOCIGUAT

REACTIONS (24)
  - Seizure [Unknown]
  - Arthralgia [Recovering/Resolving]
  - Nausea [Unknown]
  - Decreased appetite [Unknown]
  - Peripheral swelling [Unknown]
  - Tremor [Unknown]
  - Neuropathy peripheral [Not Recovered/Not Resolved]
  - Aphonia [Unknown]
  - Vomiting [Unknown]
  - Exercise lack of [Unknown]
  - Anosmia [Unknown]
  - Nasopharyngitis [Unknown]
  - Retching [Unknown]
  - Pain in extremity [Recovering/Resolving]
  - Dyspnoea [Unknown]
  - Back pain [Unknown]
  - Arthritis [Unknown]
  - Ageusia [Unknown]
  - Unevaluable event [Unknown]
  - Myalgia [Unknown]
  - Weight decreased [Unknown]
  - Fatigue [Unknown]
  - Hypotension [Unknown]
  - Neuralgia [Unknown]
